FAERS Safety Report 9736204 (Version 2)
Quarter: 2013Q4

REPORT INFORMATION
  Report Type: Spontaneous
  Country: US (occurrence: US)
  Receive Date: 20131206
  Receipt Date: 20131206
  Transmission Date: 20140711
  Serious: Yes (Other)
  Sender: FDA-Public Use
  Company Number: 2013SP003332

PATIENT
  Age: 48 Year
  Sex: Male
  Weight: 124 kg

DRUGS (13)
  1. LATUDA [Suspect]
     Indication: MAJOR DEPRESSION
     Route: 048
     Dates: start: 201310, end: 20131112
  2. LATUDA [Suspect]
     Indication: MAJOR DEPRESSION
     Route: 048
     Dates: start: 201310, end: 20131112
  3. CELEXA                             /00582602/ [Concomitant]
     Route: 048
  4. EFFEXOR [Concomitant]
     Route: 048
  5. SINGULAIR [Concomitant]
     Route: 048
  6. MUCINEX [Concomitant]
     Route: 048
  7. ACIPHEX [Concomitant]
     Route: 048
  8. LEVOTHYROXINE [Concomitant]
     Route: 048
  9. BYETTA [Concomitant]
     Route: 058
  10. METFORMIN [Concomitant]
     Route: 048
  11. ZYPREXA [Concomitant]
     Dates: start: 201311
  12. ZYPREXA [Concomitant]
     Dates: end: 201310
  13. ZYPREXA [Concomitant]
     Dates: start: 1998

REACTIONS (15)
  - Throat tightness [Recovered/Resolved]
  - Dyspnoea [Recovered/Resolved]
  - Urticaria [Recovered/Resolved]
  - Weight decreased [Recovered/Resolved]
  - Blood glucose decreased [Recovered/Resolved]
  - Hypersensitivity [Recovered/Resolved]
  - Vasodilatation [Recovered/Resolved]
  - Erythema [Recovered/Resolved]
  - Local swelling [Recovered/Resolved]
  - Skin warm [Recovered/Resolved]
  - Pruritus generalised [Recovered/Resolved]
  - Rash [Recovered/Resolved]
  - Pruritus [Recovered/Resolved]
  - Expired drug administered [None]
  - Off label use [None]
